FAERS Safety Report 4521098-6 (Version None)
Quarter: 2004Q4

REPORT INFORMATION
  Report Type: 
  Country: None (occurrence: None)
  Receive Date: 20041203
  Receipt Date: 20041126
  Transmission Date: 20050328
  Serious: Yes (Death, Life-Threatening)
  Sender: FDA-Public Use
  Company Number: TPG2004A00312

PATIENT
  Age: 72 Year
  Sex: Male

DRUGS (2)
  1. ACTOS [Suspect]
     Indication: DIABETES MELLITUS NON-INSULIN-DEPENDENT
     Dosage: SEE IMAGE
     Route: 048
     Dates: start: 20040629, end: 20040721
  2. ACTOS [Suspect]
     Indication: DIABETES MELLITUS NON-INSULIN-DEPENDENT
     Dosage: SEE IMAGE
     Route: 048
     Dates: start: 20040722, end: 20040927

REACTIONS (7)
  - CONDITION AGGRAVATED [None]
  - CORONARY ARTERY DISEASE [None]
  - EOSINOPHILIA [None]
  - NEPHRITIS ALLERGIC [None]
  - NEPHRITIS INTERSTITIAL [None]
  - NEPHROPATHY [None]
  - RENAL FAILURE [None]
